FAERS Safety Report 4348950-9 (Version None)
Quarter: 2004Q2

REPORT INFORMATION
  Report Type: 
  Country: None (occurrence: None)
  Receive Date: 20040423
  Receipt Date: 20040414
  Transmission Date: 20050107
  Serious: Yes (Hospitalization)
  Sender: FDA-Public Use
  Company Number: HQWYE462814APR04

PATIENT
  Age: 9 Year
  Sex: Male

DRUGS (2)
  1. CHILDREN'S ADVIL [Suspect]
     Indication: PAIN
     Dosage: ^35 KG DOSE^ 3 TIMES ORAL; ^35 KG DOSE^ ONCE ORAL
     Route: 048
     Dates: start: 20040323, end: 20040323
  2. CHILDREN'S ADVIL [Suspect]
     Indication: PAIN
     Dosage: ^35 KG DOSE^ 3 TIMES ORAL; ^35 KG DOSE^ ONCE ORAL
     Route: 048
     Dates: start: 20040324, end: 20040324

REACTIONS (2)
  - LYMPHADENOPATHY [None]
  - PERIORBITAL CELLULITIS [None]
